FAERS Safety Report 24066065 (Version 2)
Quarter: 2024Q3

REPORT INFORMATION
  Report Type: Report from Study
  Country: FR (occurrence: FR)
  Receive Date: 20240709
  Receipt Date: 20240828
  Transmission Date: 20241017
  Serious: Yes (Other)
  Sender: PFIZER
  Company Number: FR-SEATTLE GENETICS-2021SGN02728

PATIENT
  Sex: Female

DRUGS (3)
  1. TUCATINIB [Suspect]
     Active Substance: TUCATINIB
  2. TRASTUZUMAB [Suspect]
     Active Substance: TRASTUZUMAB
  3. CAPECITABINE [Suspect]
     Active Substance: CAPECITABINE

REACTIONS (1)
  - Hepatotoxicity [Recovered/Resolved]
